FAERS Safety Report 8294837-9 (Version None)
Quarter: 2012Q2

REPORT INFORMATION
  Report Type: 
  Country: None (occurrence: None)
  Receive Date: 20120418
  Receipt Date: 20120410
  Transmission Date: 20120825
  Serious: Yes (Hospitalization)
  Sender: FDA-Public Use
  Company Number: FR-JNJFOC-20120405657

PATIENT
  Sex: Female
  Weight: 60 kg

DRUGS (1)
  1. LISTERINE COOLMINT [Suspect]
     Indication: ACCIDENTAL EXPOSURE
     Route: 048
     Dates: start: 20120410, end: 20120410

REACTIONS (4)
  - ACCIDENTAL EXPOSURE [None]
  - OVERDOSE [None]
  - SOMNOLENCE [None]
  - ABDOMINAL PAIN [None]
